FAERS Safety Report 9056798 (Version 3)
Quarter: 2013Q2

REPORT INFORMATION
  Report Type: Report from Study
  Country: CA (occurrence: CA)
  Receive Date: 20130201
  Receipt Date: 20130606
  Transmission Date: 20140414
  Serious: Yes (Hospitalization)
  Sender: FDA-Public Use
  Company Number: CA-PFIZER INC-2013035153

PATIENT
  Age: 53 Year
  Sex: Male
  Weight: 49 kg

DRUGS (11)
  1. CISPLATIN [Suspect]
     Indication: SQUAMOUS CELL CARCINOMA OF THE ORAL CAVITY
     Dosage: 158 MG, UNK,
     Route: 042
     Dates: start: 20121211
  2. FLUOROURACIL [Suspect]
     Indication: SQUAMOUS CELL CARCINOMA OF THE ORAL CAVITY
     Dosage: 1580 MG, UNK
     Route: 042
     Dates: start: 20121211
  3. BLINDED THERAPY [Suspect]
     Indication: HEAD AND NECK CANCER
     Dosage: UNK
     Route: 042
     Dates: start: 20121211
  4. BLINDED THERAPY [Suspect]
     Indication: SQUAMOUS CELL CARCINOMA OF THE ORAL CAVITY
  5. DEXAMETHASONE [Concomitant]
     Indication: PROPHYLAXIS
     Dosage: UNK
     Dates: start: 20121211
  6. GRANISETRON [Concomitant]
     Indication: PROPHYLAXIS
     Dosage: UNK
     Dates: start: 20121211
  7. FOSAPREPITANT [Concomitant]
     Indication: PROPHYLAXIS
     Dosage: UNK
     Dates: start: 20121211
  8. FUROSEMIDE [Concomitant]
     Indication: PROPHYLAXIS
     Dosage: UNK
     Dates: start: 20121211
  9. MORPHINE [Concomitant]
     Indication: PROPHYLAXIS
     Dosage: UNK
     Dates: start: 20121102
  10. HYDROCORTISONE [Concomitant]
     Indication: PROPHYLAXIS
     Dosage: UNK
     Dates: start: 20130102
  11. CLINDAMYCIN [Concomitant]
     Indication: PROPHYLAXIS
     Dosage: UNK
     Dates: start: 20130102

REACTIONS (1)
  - Febrile neutropenia [Recovered/Resolved]
